FAERS Safety Report 15208086 (Version 2)
Quarter: 2018Q3

REPORT INFORMATION
  Report Type: Spontaneous
  Country: IT (occurrence: IT)
  Receive Date: 20180727
  Receipt Date: 20180807
  Transmission Date: 20181010
  Serious: Yes (Life-Threatening, Hospitalization)
  Sender: FDA-Public Use
  Company Number: IT-MYLANLABS-2018M1057944

PATIENT
  Age: 22 Year
  Sex: Male

DRUGS (9)
  1. VALPROATE [Concomitant]
     Active Substance: VALPROIC ACID
     Dosage: 1000 MG, QD
     Route: 065
  2. OLANZAPINE. [Concomitant]
     Active Substance: OLANZAPINE
     Dosage: 10 MG, QD
  3. OLANZAPINE. [Concomitant]
     Active Substance: OLANZAPINE
     Indication: PSYCHOTIC DISORDER
     Dosage: 20 MG, UNK
  4. OLANZAPINE. [Concomitant]
     Active Substance: OLANZAPINE
     Dosage: 5 MG, QD
  5. CLOZAPINE. [Suspect]
     Active Substance: CLOZAPINE
     Indication: PSYCHOTIC DISORDER
     Dosage: 25 MG, QD
  6. VALPROATE [Concomitant]
     Active Substance: VALPROIC ACID
     Indication: PSYCHOTIC DISORDER
     Dosage: 2000 MG, UNK
     Route: 065
  7. GABAPENTIN. [Concomitant]
     Active Substance: GABAPENTIN
     Indication: PSYCHOTIC DISORDER
     Dosage: 900 MG, UNK
  8. CLONAZEPAM. [Concomitant]
     Active Substance: CLONAZEPAM
     Indication: PSYCHOTIC DISORDER
     Dosage: 6 MG, UNK
  9. CLOZAPINE. [Suspect]
     Active Substance: CLOZAPINE
     Dosage: 75 MG, QD

REACTIONS (19)
  - Leukocytosis [Recovered/Resolved]
  - Nausea [Recovered/Resolved]
  - Abdominal pain [Recovered/Resolved]
  - Acute kidney injury [Recovered/Resolved]
  - Infection parasitic [Recovered/Resolved]
  - Dehydration [Recovered/Resolved]
  - Blood immunoglobulin E increased [Recovered/Resolved]
  - Pyrexia [Recovered/Resolved]
  - Sepsis [Recovered/Resolved]
  - Tachycardia [Recovered/Resolved]
  - Vomiting [Recovered/Resolved]
  - Tubulointerstitial nephritis [Recovered/Resolved]
  - Lethargy [Unknown]
  - Urinary tract infection [Recovered/Resolved]
  - Cardiomegaly [Recovered/Resolved]
  - Myocarditis [Recovered/Resolved]
  - Polyserositis [Recovered/Resolved]
  - Appendicitis [Recovered/Resolved]
  - Diarrhoea [Recovered/Resolved]
